FAERS Safety Report 9461335 (Version 1)
Quarter: 2013Q3

REPORT INFORMATION
  Report Type: Report from Study
  Country: ES (occurrence: ES)
  Receive Date: 20130816
  Receipt Date: 20130816
  Transmission Date: 20140515
  Serious: Yes (Hospitalization)
  Sender: FDA-Public Use
  Company Number: ES-009507513-2010SP063093

PATIENT
  Age: 67 Year
  Sex: Female
  Weight: 79.5 kg

DRUGS (5)
  1. TEMOZOLOMIDE [Suspect]
     Indication: GLIOBLASTOMA
     Dosage: 140 MG, QD
     Route: 048
     Dates: start: 20100623, end: 20100714
  2. TEMOZOLOMIDE [Suspect]
     Dosage: , DURING 42-49 DAYS (CONCOMITANCE PHASE) IN TOTAL THE PATIENT RECEIVED 90 DOSES75 MG/M2, QD
     Route: 048
     Dates: start: 20101005, end: 20101216
  3. ACETAMINOPHEN [Concomitant]
     Dosage: UNK
     Route: 048
     Dates: start: 20101130
  4. FUROSEMIDE [Concomitant]
     Dosage: UNK
     Route: 048
     Dates: start: 20101130
  5. LEVETIRACETAM [Concomitant]
     Dosage: UNK
     Route: 048
     Dates: start: 20101130

REACTIONS (1)
  - Pulmonary embolism [Recovered/Resolved]
